FAERS Safety Report 10883057 (Version 1)
Quarter: 2015Q1

REPORT INFORMATION
  Report Type: Spontaneous
  Country: US (occurrence: None)
  Receive Date: 20150226
  Receipt Date: 20150226
  Transmission Date: 20150721
  Serious: No
  Sender: FDA-Public Use
  Company Number: None

PATIENT
  Age: 60 Year
  Sex: Male

DRUGS (1)
  1. CRESTOR [Suspect]
     Active Substance: ROSUVASTATIN CALCIUM
     Indication: BLOOD CHOLESTEROL INCREASED
     Route: 048
     Dates: start: 20140727, end: 20150222

REACTIONS (5)
  - Pain in extremity [None]
  - Rash pruritic [None]
  - Gait disturbance [None]
  - Inappropriate schedule of drug administration [None]
  - Back pain [None]

NARRATIVE: CASE EVENT DATE: 20150222
